FAERS Safety Report 8104474-4 (Version None)
Quarter: 2012Q1

REPORT INFORMATION
  Report Type: 
  Country: None (occurrence: None)
  Receive Date: 20120201
  Receipt Date: 20120120
  Transmission Date: 20120608
  Serious: Yes (Hospitalization, Other)
  Sender: FDA-Public Use
  Company Number: US-SANOFI-AVENTIS-2010SA073904

PATIENT
  Age: 73 Year
  Sex: Male
  Weight: 94 kg

DRUGS (12)
  1. SYNTHROID [Concomitant]
     Dates: start: 20051214
  2. BIAFINE [Concomitant]
     Dates: start: 20060112, end: 20070430
  3. SUNITINIB MALATE [Suspect]
     Indication: RENAL CANCER METASTATIC
     Route: 048
     Dates: start: 20051108, end: 20060522
  4. METOPROLOL TARTRATE [Concomitant]
     Dates: start: 20070428, end: 20070430
  5. LOVENOX [Suspect]
     Route: 058
     Dates: start: 20070326, end: 20070505
  6. HYDROCODONE BITARTRATE [Concomitant]
     Dates: start: 20051121
  7. TESSALON [Concomitant]
     Dates: start: 20051031
  8. HYTRIN [Concomitant]
     Dates: start: 20050701, end: 20070430
  9. BENICAR [Concomitant]
     Dates: start: 20070423, end: 20070430
  10. COMPAZINE [Concomitant]
     Dates: start: 20051108, end: 20070430
  11. SUNITINIB MALATE [Suspect]
     Route: 048
     Dates: start: 20070103, end: 20070424
  12. FUROSEMIDE [Concomitant]
     Dates: start: 20060622

REACTIONS (2)
  - DYSPNOEA [None]
  - HAEMOTHORAX [None]
